FAERS Safety Report 7357093-1 (Version None)
Quarter: 2011Q1

REPORT INFORMATION
  Report Type: 
  Country: None (occurrence: None)
  Receive Date: 20110308
  Receipt Date: 20110222
  Transmission Date: 20110831
  Serious: Yes (Death, Hospitalization)
  Sender: FDA-Public Use
  Company Number: 2011000942

PATIENT
  Age: 52 Year
  Sex: Male

DRUGS (1)
  1. ERLOTINIB (ERLOTINIB) (TABLET) (ERLOTINIB) [Suspect]
     Indication: NON-SMALL CELL LUNG CANCER
     Dosage: 150 MG, DAILY, ORAL
     Route: 048
     Dates: start: 20090319, end: 20090401

REACTIONS (2)
  - NAUSEA [None]
  - PNEUMONIA [None]
